FAERS Safety Report 6860331-2 (Version None)
Quarter: 2010Q3

REPORT INFORMATION
  Report Type: 
  Country: None (occurrence: None)
  Receive Date: 20100720
  Receipt Date: 20100630
  Transmission Date: 20110219
  Serious: Yes (Other)
  Sender: FDA-Public Use
  Company Number: PHHY2010JP43231

PATIENT
  Sex: Male
  Weight: 69 kg

DRUGS (10)
  1. DIOVAN [Suspect]
     Dosage: 160 MG, IN TWO DIVIDED DOSES DAILY
     Route: 048
     Dates: start: 20080415, end: 20080627
  2. DIOVAN [Suspect]
     Dosage: 80 MG, TWO DIVIDED DOSES DAILY
     Route: 048
     Dates: start: 20080628, end: 20081027
  3. DIOVAN [Suspect]
     Dosage: 40 MG IN TWO DIVIDED DOSES DAILY
     Route: 048
     Dates: start: 20081028, end: 20081028
  4. BLOPRESS [Concomitant]
     Indication: HYPERTENSION
     Dosage: 10 MG, UNK
     Dates: end: 20080415
  5. ADALAT CC [Concomitant]
     Indication: HYPERTENSION
     Dosage: 20 MG, UNK
     Dates: end: 20080414
  6. CONIEL [Concomitant]
     Indication: HYPERTENSION
     Dosage: 8 MG, UNK
     Dates: start: 20080415
  7. MAINTATE [Concomitant]
     Indication: HYPERTENSION
     Dosage: 2.5 MG, UNK
     Dates: start: 20081028
  8. ALLOPURINOL [Concomitant]
     Dosage: 100 MG, UNK
     Route: 048
     Dates: start: 20080512
  9. ALLOPURINOL [Concomitant]
     Dosage: 200 MG, UNK
     Route: 048
  10. BUFFERIN [Concomitant]
     Dosage: 81 MG, UNK
     Route: 048

REACTIONS (4)
  - BLOOD GLUCOSE INCREASED [None]
  - BLOOD PRESSURE DECREASED [None]
  - HEART RATE INCREASED [None]
  - RENAL CELL CARCINOMA [None]
